FAERS Safety Report 9622306 (Version 1)
Quarter: 2013Q4

REPORT INFORMATION
  Report Type: Spontaneous
  Country: US (occurrence: US)
  Receive Date: 20131015
  Receipt Date: 20131015
  Transmission Date: 20140711
  Serious: No
  Sender: FDA-Public Use
  Company Number: US-PURDUE-USA-2012-0085851

PATIENT
  Sex: Male

DRUGS (1)
  1. BUTRANS [Suspect]
     Indication: PRODUCT USED FOR UNKNOWN INDICATION
     Dosage: 5 MCG/HR, UNK
     Route: 062

REACTIONS (9)
  - Hypopnoea [Unknown]
  - Skin tightness [Unknown]
  - Acne [Unknown]
  - Wheezing [Unknown]
  - Application site rash [Unknown]
  - Application site pruritus [Unknown]
  - Application site vesicles [Unknown]
  - Application site pain [Unknown]
  - Rash [Unknown]
